FAERS Safety Report 10783546 (Version 1)
Quarter: 2015Q1

REPORT INFORMATION
  Report Type: Spontaneous
  Country: US (occurrence: US)
  Receive Date: 20150210
  Receipt Date: 20150210
  Transmission Date: 20150721
  Serious: No
  Sender: FDA-Public Use
  Company Number: US-BAYER-2015-020060

PATIENT
  Age: 81 Year
  Sex: Female
  Weight: 73 kg

DRUGS (3)
  1. BAYER GENUINE ASPIRIN [Suspect]
     Active Substance: ASPIRIN
     Indication: ARTHRITIS
     Dosage: 2 DF, UNK
     Route: 048
  2. ALEVE [Suspect]
     Active Substance: NAPROXEN SODIUM
     Indication: ARTHRITIS
     Dosage: 2 DF, BID
     Route: 048
  3. POTASSIUM [POTASSIUM] [Concomitant]

REACTIONS (3)
  - Incorrect dose administered [Unknown]
  - Incorrect drug administration duration [Unknown]
  - Drug ineffective [Unknown]
